FAERS Safety Report 4964683-X (Version None)
Quarter: 2006Q2

REPORT INFORMATION
  Report Type: 
  Country: None (occurrence: None)
  Receive Date: 20060406
  Receipt Date: 20060202
  Transmission Date: 20061013
  Serious: Yes (Hospitalization, Other)
  Sender: FDA-Public Use
  Company Number: US-MERCK-0602USA01723

PATIENT
  Age: 61 Year
  Sex: Female
  Weight: 135 kg

DRUGS (2)
  1. VIOXX [Suspect]
     Indication: ARTHRALGIA
     Route: 048
     Dates: end: 20040803
  2. ASPIRIN [Concomitant]
     Route: 048

REACTIONS (6)
  - CARDIAC MURMUR [None]
  - CEREBROVASCULAR ACCIDENT [None]
  - EYE DISORDER [None]
  - OCULAR VASCULAR DISORDER [None]
  - THROMBOSIS [None]
  - ULCER HAEMORRHAGE [None]
